FAERS Safety Report 4566962-7 (Version None)
Quarter: 2005Q1

REPORT INFORMATION
  Report Type: 
  Country: None (occurrence: None)
  Receive Date: 20050201
  Receipt Date: 20030527
  Transmission Date: 20050727
  Serious: Yes (Other)
  Sender: FDA-Public Use
  Company Number: US-BRISTOL-MYERS SQUIBB COMPANY-12286332

PATIENT
  Age: 71 Year
  Sex: Female

DRUGS (5)
  1. STADOL [Suspect]
     Route: 045
     Dates: start: 19960806, end: 20010901
  2. HYDROXYZINE [Concomitant]
  3. GEMFIBROZIL [Concomitant]
  4. HYDROCODONE + ACETAMINOPHEN [Concomitant]
  5. ULTRAM [Concomitant]

REACTIONS (2)
  - DEPENDENCE [None]
  - PALPITATIONS [None]
